FAERS Safety Report 8567943-9 (Version None)
Quarter: 2012Q3

REPORT INFORMATION
  Report Type: 
  Country: None (occurrence: None)
  Receive Date: 20120803
  Receipt Date: 20110921
  Transmission Date: 20120928
  Serious: No
  Sender: FDA-Public Use
  Company Number: US-ABBOTT-11P-163-0856978-00

PATIENT
  Sex: Female
  Weight: 61.29 kg

DRUGS (6)
  1. NIASPAN [Suspect]
     Dates: start: 20110701
  2. NIASPAN [Suspect]
     Dates: start: 20100101, end: 20110101
  3. LOVOXYL [Concomitant]
     Indication: HYPOTHYROIDISM
  4. NIASPAN [Suspect]
     Dates: start: 20110401, end: 20110601
  5. NIASPAN [Suspect]
     Dates: start: 20100101, end: 20100101
  6. NIASPAN [Suspect]
     Indication: BLOOD CHOLESTEROL INCREASED
     Dates: start: 20100101, end: 20100101

REACTIONS (2)
  - FLUSHING [None]
  - MUSCLE SPASMS [None]
